FAERS Safety Report 8000151-9 (Version None)
Quarter: 2011Q4

REPORT INFORMATION
  Report Type: 
  Country: None (occurrence: None)
  Receive Date: 20111123
  Receipt Date: 20111004
  Transmission Date: 20120403
  Serious: Yes (Hospitalization)
  Sender: FDA-Public Use
  Company Number: 334303

PATIENT
  Age: 68 Year
  Sex: Male
  Weight: 126.1 kg

DRUGS (8)
  1. PLAVIX [Concomitant]
  2. CASODEX 50 (BICALUTAMIDE) [Concomitant]
  3. METFORMIN HCL [Concomitant]
  4. TERAZOSIN HCL [Concomitant]
  5. MICARDIS [Concomitant]
  6. VICTOZA [Suspect]
     Indication: TYPE 2 DIABETES MELLITUS
     Dosage: 0.6 MG, QD, 1.8 MG, QD SUBCUTANEOUS
     Route: 058
     Dates: start: 20110401
  7. VICTOZA [Suspect]
     Indication: TYPE 2 DIABETES MELLITUS
     Dosage: 0.6 MG, QD, 1.8 MG, QD SUBCUTANEOUS
     Route: 058
     Dates: start: 20110218
  8. LUPRON DEPOT [Concomitant]

REACTIONS (1)
  - PANCREATITIS ACUTE [None]
